FAERS Safety Report 11285028 (Version 1)
Quarter: 2015Q3

REPORT INFORMATION
  Report Type: Spontaneous
  Country: US (occurrence: US)
  Receive Date: 20150720
  Receipt Date: 20150720
  Transmission Date: 20151125
  Serious: No
  Sender: FDA-Public Use
  Company Number: US-PFIZER INC-2015232802

PATIENT
  Age: 59 Year
  Sex: Female
  Weight: 116 kg

DRUGS (1)
  1. LIPITOR [Suspect]
     Active Substance: ATORVASTATIN CALCIUM
     Indication: BLOOD CHOLESTEROL INCREASED
     Dosage: 80 MG, 1X/DAY
     Dates: end: 201507

REACTIONS (4)
  - Hypoaesthesia [Unknown]
  - Nerve injury [Unknown]
  - Peripheral vascular disorder [Unknown]
  - Pain [Unknown]
